FAERS Safety Report 8180531-1 (Version None)
Quarter: 2012Q1

REPORT INFORMATION
  Report Type: 
  Country: None (occurrence: None)
  Receive Date: 20120224
  Receipt Date: 20120214
  Transmission Date: 20120608
  Serious: Yes (Hospitalization, Other)
  Sender: FDA-Public Use
  Company Number: 2012030937

PATIENT
  Age: 42 Year
  Sex: Female
  Weight: 163.2949 kg

DRUGS (40)
  1. SPIRIVA [Concomitant]
  2. ZYFLO [Concomitant]
  3. PROTONIX [Concomitant]
  4. XYZAL [Concomitant]
  5. ACETAMINOPHEN [Concomitant]
  6. MIRAPEX [Concomitant]
  7. FOLIC ACID [Concomitant]
  8. ASPIRIN [Concomitant]
  9. OXYGEN (OXYGEN) [Concomitant]
  10. AVAPRO [Concomitant]
  11. LIPITOR [Concomitant]
  12. HIZENTRA [Suspect]
  13. PREDNISONE TAB [Concomitant]
  14. PLAVIX [Concomitant]
  15. BENADRYL [Concomitant]
  16. NOVOLOG [Concomitant]
  17. KETOPROFEN [Concomitant]
  18. ALBUTEROL [Concomitant]
  19. NASACORT [Concomitant]
  20. HIZENTRA [Suspect]
  21. LASIX [Concomitant]
  22. BIAXIN [Concomitant]
  23. CELEBREX [Concomitant]
  24. HYDROCODONE BITARTRATE [Concomitant]
  25. TOPAMAX [Concomitant]
  26. CALTRATE (CALTRATE /01721501/) [Concomitant]
  27. IRON (IRON) [Concomitant]
  28. PHENERGAN [Concomitant]
  29. HIZENTRA [Suspect]
     Indication: HYPOGLOBULINAEMIA
     Dosage: SEE IMAGE
     Route: 058
     Dates: start: 20110315
  30. HIZENTRA [Suspect]
  31. DUONEB [Concomitant]
  32. NEURONTIN [Concomitant]
  33. POTASSIUM CHLORIDE [Concomitant]
  34. ALBUTEROL [Concomitant]
  35. HIZENTRA [Suspect]
  36. THEOPHYLLINE [Concomitant]
  37. METOCLOPRAMIDE [Concomitant]
  38. DEPAKOTE [Concomitant]
  39. ZAROXOLYN [Concomitant]
  40. NASACORT [Concomitant]

REACTIONS (1)
  - UPPER RESPIRATORY TRACT INFECTION [None]
